FAERS Safety Report 19205266 (Version 1)
Quarter: 2021Q2

REPORT INFORMATION
  Report Type: Spontaneous
  Country: US (occurrence: US)
  Receive Date: 20210501
  Receipt Date: 20210501
  Transmission Date: 20210717
  Serious: Yes (Life-Threatening, Hospitalization, Disabling)
  Sender: FDA-Public Use
  Company Number: None

PATIENT
  Age: 4 Year
  Sex: Male
  Weight: 21.6 kg

DRUGS (4)
  1. PROHANCE [Suspect]
     Active Substance: GADOTERIDOL
     Indication: SCAN WITH CONTRAST
     Dosage: ?          OTHER FREQUENCY:DURING MRI;?
     Route: 042
     Dates: start: 20210302, end: 20210416
  2. PROHANCE [Suspect]
     Active Substance: GADOTERIDOL
     Indication: SCAN WITH CONTRAST
  3. TYLENOL [Concomitant]
     Active Substance: ACETAMINOPHEN
  4. IBUPROFEN. [Concomitant]
     Active Substance: IBUPROFEN

REACTIONS (6)
  - Rash macular [None]
  - Headache [None]
  - Nausea [None]
  - Neurotoxicity [None]
  - Diarrhoea [None]
  - Skin hyperpigmentation [None]

NARRATIVE: CASE EVENT DATE: 20210302
